FAERS Safety Report 20000621 (Version 1)
Quarter: 2021Q4

REPORT INFORMATION
  Report Type: Spontaneous
  Country: US (occurrence: US)
  Receive Date: 20211026
  Receipt Date: 20211026
  Transmission Date: 20220303
  Serious: No
  Sender: FDA-Public Use
  Company Number: None

PATIENT
  Sex: Male
  Weight: 83.46 kg

DRUGS (9)
  1. INLYTA [Suspect]
     Active Substance: AXITINIB
     Indication: Renal cancer
     Route: 048
  2. FELODIPINE [Concomitant]
     Active Substance: FELODIPINE
  3. CIALIS [Concomitant]
     Active Substance: TADALAFIL
  4. NAPROXEN [Concomitant]
     Active Substance: NAPROXEN
  5. VITAMINS [Concomitant]
     Active Substance: VITAMINS
  6. CYCLOBENZAPRINE [Concomitant]
     Active Substance: CYCLOBENZAPRINE
  7. BUPROPION [Concomitant]
     Active Substance: BUPROPION
  8. FISH OIL [Concomitant]
     Active Substance: FISH OIL
  9. HYDROCHLOROTHIAZIDE [Concomitant]
     Active Substance: HYDROCHLOROTHIAZIDE

REACTIONS (1)
  - Fatigue [None]
